FAERS Safety Report 5148812-3 (Version None)
Quarter: 2006Q4

REPORT INFORMATION
  Report Type: 
  Country: None (occurrence: None)
  Receive Date: 20061107
  Receipt Date: 20061026
  Transmission Date: 20070319
  Serious: Yes (Other)
  Sender: FDA-Public Use
  Company Number: HQWYE702127OCT06

PATIENT
  Sex: Female

DRUGS (2)
  1. EFFEXOR XR [Suspect]
     Indication: HOT FLUSH
     Dosage: 37.5 MG 2X PER 1 DAY, ORAL
     Route: 048
  2. ETHANOL (ETHANOL) [Suspect]

REACTIONS (3)
  - ALCOHOL POISONING [None]
  - ALCOHOLISM [None]
  - DRUG WITHDRAWAL SYNDROME [None]
